FAERS Safety Report 9602760 (Version 5)
Quarter: 2018Q3

REPORT INFORMATION
  Report Type: Report from Study
  Country: JP (occurrence: JP)
  Receive Date: 20131007
  Receipt Date: 20180911
  Transmission Date: 20181010
  Serious: Yes (Hospitalization)
  Sender: FDA-Public Use
  Company Number: PHHY2013JP110897

PATIENT
  Age: 43 Year
  Sex: Female
  Weight: 55 kg

DRUGS (13)
  1. UBRETID [Concomitant]
     Active Substance: DISTIGMINE BROMIDE
     Indication: DYSURIA
     Dosage: 5 MG, QD
     Route: 048
     Dates: start: 20120912
  2. UBRETID [Concomitant]
     Active Substance: DISTIGMINE BROMIDE
     Dosage: UNK
     Route: 048
  3. MUCOSTA [Concomitant]
     Active Substance: REBAMIPIDE
     Dosage: 100 MG, UNK
     Route: 048
     Dates: end: 20130413
  4. URSO [Concomitant]
     Active Substance: URSODIOL
     Indication: CHRONIC HEPATITIS
     Dosage: 300 MG, QD
     Route: 048
  5. LOXONIN [Concomitant]
     Active Substance: LOXOPROFEN SODIUM
     Dosage: 60 MG, PRN
     Route: 048
     Dates: end: 20130413
  6. ALINAMIN F [Concomitant]
     Active Substance: FURSULTIAMINE HYDROCHLORIDE
     Indication: NEUROPATHY PERIPHERAL
     Dosage: 75 MG, QD
     Route: 048
  7. EPL [Concomitant]
     Active Substance: LECITHIN
     Indication: HYPERLIPIDAEMIA
     Dosage: 1.5 G, QD
     Route: 048
  8. LOXONIN [Concomitant]
     Active Substance: LOXOPROFEN SODIUM
     Indication: ANALGESIC THERAPY
     Dosage: 180 MG, QD
     Route: 048
     Dates: start: 20120901, end: 20121126
  9. GILENYA [Suspect]
     Active Substance: FINGOLIMOD HYDROCHLORIDE
     Indication: MULTIPLE SCLEROSIS
     Dosage: 0.5 MG, QD
     Route: 048
     Dates: start: 20120813
  10. DIHYDERGOT [Concomitant]
     Indication: ORTHOSTATIC HYPOTENSION
     Dosage: 2 MG, QD
     Route: 048
  11. METHYCOBAL [Concomitant]
     Active Substance: METHYLCOBALAMIN
     Indication: NEUROPATHY PERIPHERAL
     Dosage: 1.5 MG, QD
     Route: 048
  12. LOXONIN [Concomitant]
     Active Substance: LOXOPROFEN SODIUM
     Indication: NEUROPATHY PERIPHERAL
     Dosage: 60 MG, PRN
     Route: 048
  13. MUCOSTA [Concomitant]
     Active Substance: REBAMIPIDE
     Indication: NEUROPATHY PERIPHERAL
     Dosage: 300 MG, UNK
     Route: 048
     Dates: start: 20120901, end: 20121126

REACTIONS (7)
  - Injury [Unknown]
  - Radius fracture [Recovered/Resolved]
  - Tibia fracture [Recovered/Resolved]
  - Fibula fracture [Recovered/Resolved]
  - Somnolence [Recovered/Resolved]
  - Hand fracture [Recovered/Resolved]
  - Accident [Unknown]

NARRATIVE: CASE EVENT DATE: 20120823
